FAERS Safety Report 8779558 (Version 1)
Quarter: 2012Q4

REPORT INFORMATION
  Report Type: 
  Country: DE (occurrence: DE)
  Receive Date: 20120912
  Receipt Date: 20120912
  Transmission Date: 20130627
  Serious: Yes (Other)
  Sender: FDA-Public Use
  Company Number: DE-RANBAXY-2012RR-60024

PATIENT

DRUGS (1)
  1. ACICLO BASICS 400 MG [Suspect]
     Indication: PRODUCT USED FOR UNKNOWN INDICATION
     Dosage: UNK
     Route: 048

REACTIONS (3)
  - Blood pressure increased [Unknown]
  - Convulsions local [Unknown]
  - Pyrexia [Unknown]
